FAERS Safety Report 24825800 (Version 2)
Quarter: 2025Q1

REPORT INFORMATION
  Report Type: Report from Study
  Country: US (occurrence: US)
  Receive Date: 20250109
  Receipt Date: 20250117
  Transmission Date: 20250409
  Serious: Yes (Hospitalization, Other)
  Sender: ALEXION PHARMACEUTICALS
  Company Number: US-AstraZeneca-CH-00739453A

PATIENT

DRUGS (4)
  1. ULTOMIRIS [Suspect]
     Active Substance: RAVULIZUMAB-CWVZ
     Route: 065
  2. ULTOMIRIS [Suspect]
     Active Substance: RAVULIZUMAB-CWVZ
     Route: 065
  3. ULTOMIRIS [Suspect]
     Active Substance: RAVULIZUMAB-CWVZ
     Route: 065
  4. ULTOMIRIS [Suspect]
     Active Substance: RAVULIZUMAB-CWVZ
     Route: 065

REACTIONS (19)
  - Urinary tract infection [Unknown]
  - Loss of consciousness [Unknown]
  - Dementia [Unknown]
  - Hearing aid user [Unknown]
  - Urinary incontinence [Unknown]
  - Fall [Unknown]
  - Balance disorder [Unknown]
  - Weight decreased [Unknown]
  - Anal incontinence [Unknown]
  - Drug ineffective [Unknown]
  - Head injury [Unknown]
  - Asthenia [Unknown]
  - Malaise [Unknown]
  - Infrequent bowel movements [Unknown]
  - Scar [Unknown]
  - Contusion [Unknown]
  - Impaired driving ability [Unknown]
  - Blood disorder [Unknown]
  - Limb injury [Unknown]
